FAERS Safety Report 5801530-8 (Version None)
Quarter: 2008Q3

REPORT INFORMATION
  Report Type: 
  Country: None (occurrence: None)
  Receive Date: 20080707
  Receipt Date: 20080626
  Transmission Date: 20090109
  Serious: Yes (Hospitalization)
  Sender: FDA-Public Use
  Company Number: US-JNJFOC-20080606890

PATIENT
  Sex: Female

DRUGS (3)
  1. DURAGESIC-100 [Suspect]
     Dosage: 1X 100UG/HR PATCH PLUS 1X 50UG/HR PATCH
     Route: 062
  2. DURAGESIC-100 [Suspect]
     Route: 062
  3. DURAGESIC-100 [Suspect]
     Indication: PAIN
     Dosage: 1X 100UG/HR PATCH PLUS 1X 50UG/HR PATCH
     Route: 062

REACTIONS (3)
  - DRUG INEFFECTIVE [None]
  - FATIGUE [None]
  - HOSPITALISATION [None]
